FAERS Safety Report 11891037 (Version 1)
Quarter: 2016Q1

REPORT INFORMATION
  Report Type: Spontaneous
  Country: FR (occurrence: FR)
  Receive Date: 20160106
  Receipt Date: 20160106
  Transmission Date: 20160526
  Serious: Yes (Hospitalization)
  Sender: FDA-Public Use
  Company Number: FR-009507513-1601FRA000267

PATIENT
  Age: 41 Year
  Sex: Male

DRUGS (7)
  1. SUFENTANIL [Suspect]
     Active Substance: SUFENTANIL
     Dosage: 20 MICROGRAM, AT 8.29 AM AND 5 MICROGRAM, AT 8.52 AM
     Route: 042
     Dates: start: 20151125, end: 20151125
  2. ESMERON [Suspect]
     Active Substance: ROCURONIUM BROMIDE
     Dosage: 40 MG, SINGLE DOSE AT 8.32 AM
     Route: 042
     Dates: start: 20151125, end: 20151125
  3. PROPOFOL FRESENIUS [Suspect]
     Active Substance: PROPOFOL
     Dosage: 200 MG, AT 8.32 AM AND 40MG AT 8:47 AM
     Route: 042
     Dates: start: 20151125, end: 20151125
  4. LORAZEPAM. [Concomitant]
     Active Substance: LORAZEPAM
     Dosage: UNK
  5. THERALENE [Concomitant]
     Active Substance: TRIMEPRAZINE
     Dosage: UNK
  6. PROZAC [Concomitant]
     Active Substance: FLUOXETINE HYDROCHLORIDE
     Dosage: UNK
  7. ZOLPIDEM [Concomitant]
     Active Substance: ZOLPIDEM\ZOLPIDEM TARTRATE
     Dosage: UNK

REACTIONS (4)
  - Anaphylactic shock [Recovered/Resolved]
  - Rash [Recovered/Resolved]
  - Bradycardia [Recovered/Resolved]
  - Angioedema [Recovered/Resolved]

NARRATIVE: CASE EVENT DATE: 20151125
